FAERS Safety Report 21239409 (Version 2)
Quarter: 2022Q3

REPORT INFORMATION
  Report Type: Report from Study
  Country: US (occurrence: US)
  Receive Date: 20220822
  Receipt Date: 20220831
  Transmission Date: 20221027
  Serious: Yes (Hospitalization)
  Sender: FDA-Public Use
  Company Number: US-PFIZER INC-PV202200045440

PATIENT
  Age: 35 Year
  Sex: Male
  Weight: 121.2 kg

DRUGS (27)
  1. INOTUZUMAB OZOGAMICIN [Suspect]
     Active Substance: INOTUZUMAB OZOGAMICIN
     Dosage: 0.6 MG/M2, CYCLIC (ON DAY 8)
     Dates: start: 20220805
  2. INOTUZUMAB OZOGAMICIN [Suspect]
     Active Substance: INOTUZUMAB OZOGAMICIN
     Dosage: 0.3 MG/M2, CYCLIC (ON DAY 15)
     Dates: start: 20220812
  3. VINCRISTINE SULFATE [Suspect]
     Active Substance: VINCRISTINE SULFATE
     Indication: B-cell type acute leukaemia
     Dosage: 0.4 MG/M2/DAY CIV DAYS 1-4 Q28 DAYS
     Dates: start: 20220730, end: 20220803
  4. DOXORUBICIN HYDROCHLORIDE [Suspect]
     Active Substance: DOXORUBICIN HYDROCHLORIDE
     Indication: B-cell type acute leukaemia
     Dosage: 10 MG/M2/DAY, CYCLIC (CIV DAYS 1-4 Q28 DAYS)
     Dates: start: 20220730, end: 20220803
  5. ETOPOSIDE [Suspect]
     Active Substance: ETOPOSIDE
     Indication: B-cell type acute leukaemia
     Dosage: 50 MG/M2/DAY, CYCLIC (CIV DAYS 1-4 028 DAYS)
     Dates: start: 20220730, end: 20220803
  6. CYCLOPHOSPHAMIDE [Suspect]
     Active Substance: CYCLOPHOSPHAMIDE
     Indication: B-cell type acute leukaemia
     Dosage: 750 MG/M2, CYCLIC (DAY 5 Q28 DAYS)
     Route: 042
     Dates: start: 20220804, end: 20220804
  7. ZOVIRAX [Concomitant]
     Active Substance: ACYCLOVIR
     Dosage: 800 MG, 2 TIMES DAILY
     Route: 048
  8. ALLOPURINOL [Concomitant]
     Active Substance: ALLOPURINOL
     Dosage: TAKE 1 TABLET BY MOUTH 2 TIMES A DAY.
     Route: 048
  9. ALUMINIUM/MAGNESIUM HYDROXIDE/SIMETICONE [Concomitant]
     Dosage: ALUMINUM + MAGNESIUM HYDROXIDE-SIMETHICONE, 200-200-20 MG/5ML SUSPENSION 20 ML, 4X DAILY PRN
     Route: 048
  10. AMLODIPINE [Concomitant]
     Active Substance: AMLODIPINE BESYLATE
     Dosage: TAKE 1 TABLET BY MOUTH DAILY.
     Route: 048
  11. FAMOTIDINE [Concomitant]
     Active Substance: FAMOTIDINE
     Dosage: TAKE 1 TABLET BY MOUTH EVERY EVENING
     Route: 048
  12. DIFLUCAN [Concomitant]
     Active Substance: FLUCONAZOLE
     Dosage: 200 MG, DAILY
     Route: 048
  13. HYDROMORPHONE [Concomitant]
     Active Substance: HYDROMORPHONE
     Indication: Pain
     Dosage: 2 MG, AS NEEDED (1 TABLET EVERY 8HRS AS NEEDED)
     Route: 048
  14. INSULIN LISPRO [Concomitant]
     Active Substance: INSULIN LISPRO
     Dosage: PEN-INJECTOR, INJECT 15-27 U 3X DAILY BEFORE MEALS PER SS. DISCARD PEN 28 DAYS AFTER 1ST USE
  15. LEVAQUIN [Concomitant]
     Active Substance: LEVOFLOXACIN
     Dosage: 750 MG, DAILY (WHEN ANC LESS THAN 500 PER MD INSTRUCTION)
     Route: 048
  16. METOCLOPRAMIDE [Concomitant]
     Active Substance: METOCLOPRAMIDE
     Dosage: TAKE 1 TABLET BY MOUTH EVERY 12 HOURS.
     Route: 048
  17. OLANZAPINE [Concomitant]
     Active Substance: OLANZAPINE
     Indication: Nausea
     Dosage: TAKE 1 TABLET BY MOUTH AT BEDTIME AS NEEDED FOR UP TO 15 DAYS.
     Route: 048
  18. OLANZAPINE [Concomitant]
     Active Substance: OLANZAPINE
     Indication: Hiccups
  19. ONDANSETRON [Concomitant]
     Active Substance: ONDANSETRON
     Indication: Nausea
     Dosage: DISINTEGRATING TABLET, DISSOLVE 1 TABLET ON TOP OF TONGUE AND SWALLOW EVERY 8 HRS AS NEEDED
  20. ONDANSETRON [Concomitant]
     Active Substance: ONDANSETRON
     Indication: Vomiting
  21. PANTOPRAZOLE [Concomitant]
     Active Substance: PANTOPRAZOLE
     Dosage: EC TABLET, TAKE 1 TABLET BY MOUTH 1 TIME A DAY ON AN EMPTY STOMACH
     Route: 048
  22. COMPAZINE [Concomitant]
     Active Substance: PROCHLORPERAZINE MALEATE
     Dosage: 10 MG, EVERY 6 HOURS PRN
     Route: 048
  23. SENNOSIDES A AND B [Concomitant]
     Active Substance: SENNOSIDES A AND B
     Indication: Constipation
     Dosage: TAKE 1-2 TABLETS AT BEDTIME AS NEEDED
  24. SULFAMETHOXAZOLE AND TRIMETHOPRIM [Concomitant]
     Active Substance: SULFAMETHOXAZOLE\TRIMETHOPRIM
     Dosage: 1 TABLET, 2X DAILY ON MON/TUES, DO NOT TAKE 1ST DOSE UNTIL DIRECTED
     Route: 048
  25. SUMATRIPTAN [Concomitant]
     Active Substance: SUMATRIPTAN
     Indication: Migraine
     Dosage: TAKE 1 TABLET ONE TIME. MAY REPEAT DOSE ONCE IN 2 HOURS IF NO RELIEF.
     Route: 048
  26. TAMSULOSIN [Concomitant]
     Active Substance: TAMSULOSIN
     Dosage: TAKE 1 CAPSULE BY MOUTH 1 TIME A DAY.
     Route: 048
  27. TRAZODONE [Concomitant]
     Active Substance: TRAZODONE HYDROCHLORIDE
     Dosage: TAKE 1 TABLET BY MOUTH 1 TIME A DAY AT BEDTIME
     Route: 048

REACTIONS (1)
  - Febrile neutropenia [Not Recovered/Not Resolved]

NARRATIVE: CASE EVENT DATE: 20220817
